FAERS Safety Report 18962337 (Version 1)
Quarter: 2021Q1

REPORT INFORMATION
  Report Type: Spontaneous
  Country: US (occurrence: US)
  Receive Date: 20210302
  Receipt Date: 20210302
  Transmission Date: 20210420
  Serious: Yes (Death)
  Sender: FDA-Public Use
  Company Number: None

PATIENT
  Age: 51 Year
  Sex: Female

DRUGS (7)
  1. AMBIEN [Concomitant]
     Active Substance: ZOLPIDEM TARTRATE
  2. VALIUM [Concomitant]
     Active Substance: DIAZEPAM
  3. CEFDINIR. [Concomitant]
     Active Substance: CEFDINIR
  4. TIZANIDINE. [Concomitant]
     Active Substance: TIZANIDINE
  5. REBIF [Suspect]
     Active Substance: INTERFERON BETA-1A
     Indication: MULTIPLE SCLEROSIS
     Dosage: ?          OTHER FREQUENCY:3X PER WEEK;?
     Route: 058
     Dates: start: 20140506, end: 20210107
  6. DIAZEPAM. [Concomitant]
     Active Substance: DIAZEPAM
  7. EPITOL [Concomitant]
     Active Substance: CARBAMAZEPINE

REACTIONS (1)
  - Death [None]

NARRATIVE: CASE EVENT DATE: 20210107
